FAERS Safety Report 17905998 (Version 1)
Quarter: 2020Q2

REPORT INFORMATION
  Report Type: Report from Study
  Country: US (occurrence: US)
  Receive Date: 20200617
  Receipt Date: 20200617
  Transmission Date: 20200714
  Serious: Yes (Other)
  Sender: FDA-Public Use
  Company Number: US-PFIZER INC-2020227240

PATIENT
  Age: 70 Year
  Sex: Male

DRUGS (2)
  1. MORPHINE SULFATE. [Suspect]
     Active Substance: MORPHINE SULFATE
     Indication: PARAPLEGIA
     Dosage: LUNBAR SUBARACHNOIS INTRASPINAL INJECTION OF 1 MG TO 1.5 MG MORPHINE
  2. MORPHINE SULFATE. [Suspect]
     Active Substance: MORPHINE SULFATE
     Dosage: 2.5 MG, DAILY (INTRASPINAL) (INFUSION)

REACTIONS (4)
  - Hypercapnia [Unknown]
  - Coma [Unknown]
  - Miosis [Unknown]
  - Toxicity to various agents [Unknown]
